FAERS Safety Report 6070438-8 (Version None)
Quarter: 2009Q1

REPORT INFORMATION
  Report Type: 
  Country: None (occurrence: None)
  Receive Date: 20090209
  Receipt Date: 20090128
  Transmission Date: 20090719
  Serious: Yes (Death)
  Sender: FDA-Public Use
  Company Number: ES-CELGENEUS-144-C5013-07101161

PATIENT
  Sex: Male
  Weight: 75 kg

DRUGS (13)
  1. CC-5013 [Suspect]
     Indication: MULTIPLE MYELOMA
     Route: 048
     Dates: start: 20070828, end: 20071006
  2. DEXAMETHASONE TAB [Suspect]
     Indication: MULTIPLE MYELOMA
     Route: 048
     Dates: start: 20070828, end: 20071005
  3. ADIRO [Concomitant]
     Indication: DRUG USE FOR UNKNOWN INDICATION
     Route: 065
  4. PRIMPERAN TAB [Concomitant]
     Indication: PAIN
     Route: 051
  5. DAFALGAN [Concomitant]
     Indication: PAIN
     Route: 051
  6. PANTOPRAZOLE [Concomitant]
     Indication: PROPHYLAXIS
     Route: 051
  7. DURAGESIC-100 [Concomitant]
     Indication: PAIN
     Route: 062
  8. CLEXANE [Concomitant]
     Indication: THROMBOSIS PROPHYLAXIS
     Route: 058
  9. VALIUM [Concomitant]
     Indication: ANXIETY
     Route: 051
  10. GLUCOSALINE [Concomitant]
     Indication: HYDROTHERAPY
     Route: 051
  11. HALOPERIDOL [Concomitant]
     Indication: AGITATION
     Route: 051
  12. MORPHINE [Concomitant]
     Indication: PAIN
     Dosage: 1/3
     Route: 051
  13. DEXTROSTIX [Concomitant]
     Route: 065

REACTIONS (2)
  - CARDIAC FAILURE [None]
  - CEREBRAL HAEMORRHAGE [None]
